FAERS Safety Report 6124238-0 (Version None)
Quarter: 2009Q1

REPORT INFORMATION
  Report Type: 
  Country: None (occurrence: None)
  Receive Date: 20090317
  Receipt Date: 20090309
  Transmission Date: 20090719
  Serious: Yes (Life-Threatening)
  Sender: FDA-Public Use
  Company Number: APP200801208

PATIENT
  Age: 85 Year
  Sex: Female

DRUGS (1)
  1. HEPARIN SODIUM INJECTION [Suspect]
     Indication: ANTICOAGULANT THERAPY
     Dosage: 5000 USP UNITS,  ONCE, INTRAVENOUS BOLUS
     Route: 040
     Dates: start: 20081206, end: 20081206

REACTIONS (10)
  - ACIDOSIS [None]
  - BLOOD CREATININE INCREASED [None]
  - BLOODY AIRWAY DISCHARGE [None]
  - FEELING HOT [None]
  - FLUID OVERLOAD [None]
  - FLUSHING [None]
  - HYPOTENSION [None]
  - RENAL FAILURE ACUTE [None]
  - RESPIRATORY DISTRESS [None]
  - TACHYCARDIA [None]
